FAERS Safety Report 12649111 (Version 1)
Quarter: 2016Q3

REPORT INFORMATION
  Report Type: Spontaneous
  Country: IL (occurrence: IL)
  Receive Date: 20160812
  Receipt Date: 20160812
  Transmission Date: 20161109
  Serious: Yes (Death, Congenital Anomaly)
  Sender: FDA-Public Use
  Company Number: IL-TAKEDA-2016TUS014093

PATIENT

DRUGS (1)
  1. ENTYVIO [Suspect]
     Active Substance: VEDOLIZUMAB
     Indication: CROHN^S DISEASE
     Dosage: 300 MG, UNK
     Route: 064
     Dates: start: 201509, end: 20151217

REACTIONS (4)
  - Congenital central nervous system anomaly [Fatal]
  - Cerebellar hypoplasia [Fatal]
  - Cerebral ventricle dilatation [Fatal]
  - Microcephaly [Fatal]
